FAERS Safety Report 10191416 (Version 1)
Quarter: 2014Q2

REPORT INFORMATION
  Report Type: Spontaneous
  Country: US (occurrence: None)
  Receive Date: 20140522
  Receipt Date: 20140522
  Transmission Date: 20141212
  Serious: Yes (Other)
  Sender: FDA-Public Use
  Company Number: None

PATIENT
  Age: 63 Year
  Sex: Female
  Weight: 78.02 kg

DRUGS (2)
  1. DULOXETINE 60 MG [Suspect]
     Indication: DEPRESSION
     Dosage: 1 CAPSULE, ONCE DAILY
     Dates: start: 20140301, end: 20140520
  2. DULOXETINE 60 MG [Suspect]
     Dosage: 1 CAPSULE, ONCE DAILY
     Dates: start: 20140301, end: 20140520

REACTIONS (7)
  - Product substitution issue [None]
  - Depression [None]
  - Crying [None]
  - Feeling abnormal [None]
  - Lethargy [None]
  - Mood swings [None]
  - Bipolar disorder [None]
